FAERS Safety Report 5492198-1 (Version None)
Quarter: 2007Q4

REPORT INFORMATION
  Report Type: 
  Country: None (occurrence: None)
  Receive Date: 20071015
  Receipt Date: 20070724
  Transmission Date: 20080405
  Serious: Yes (Other)
  Sender: FDA-Public Use
  Company Number: HQWYE217525JUL07

PATIENT
  Sex: Female

DRUGS (1)
  1. RAPAMUNE [Suspect]
     Dosage: ORAL
     Route: 048

REACTIONS (3)
  - ANGIOEDEMA [None]
  - INTERSTITIAL LUNG DISEASE [None]
  - PERICARDIAL EFFUSION [None]
